FAERS Safety Report 8137608-6 (Version None)
Quarter: 2012Q1

REPORT INFORMATION
  Report Type: 
  Country: None (occurrence: None)
  Receive Date: 20120213
  Receipt Date: 20120131
  Transmission Date: 20120608
  Serious: Yes (Hospitalization)
  Sender: FDA-Public Use
  Company Number: 1000026746

PATIENT
  Age: 59 Year
  Sex: Female

DRUGS (4)
  1. THYROID TAB [Suspect]
     Indication: HYPOTHYROIDISM
     Dosage: 15 MG TID (15 MG, 3 IN 1 D), ORAL
     Route: 048
     Dates: start: 20110914, end: 20111020
  2. WELLBUTRIN XL [Concomitant]
  3. OSTEO BI-FLEX [Concomitant]
  4. DYRENIUM (TRIAMTERENE) [Concomitant]

REACTIONS (4)
  - RASH PRURITIC [None]
  - PAIN [None]
  - LUNG INFILTRATION [None]
  - TRANSIENT ISCHAEMIC ATTACK [None]
